FAERS Safety Report 9266329 (Version 2)
Quarter: 2013Q2

REPORT INFORMATION
  Report Type: Report from Study
  Country: US (occurrence: US)
  Receive Date: 20130502
  Receipt Date: 20130517
  Transmission Date: 20140414
  Serious: Yes (Hospitalization, Other)
  Sender: FDA-Public Use
  Company Number: US-ROCHE-1208680

PATIENT
  Age: 40 Year
  Sex: Male

DRUGS (2)
  1. PEGASYS [Suspect]
     Indication: CHRONIC HEPATITIS C
     Dosage: PER-FILLED SYRINGE
     Route: 065
     Dates: start: 20130224
  2. RIBAVIRIN [Suspect]
     Indication: CHRONIC HEPATITIS C
     Route: 065
     Dates: start: 20130224

REACTIONS (5)
  - Clavicle fracture [Unknown]
  - Femur fracture [Unknown]
  - Coma [Unknown]
  - Injection site bruising [Unknown]
  - Road traffic accident [Unknown]
